FAERS Safety Report 17604885 (Version 1)
Quarter: 2020Q1

REPORT INFORMATION
  Report Type: Spontaneous
  Country: US (occurrence: US)
  Receive Date: 20200331
  Receipt Date: 20200331
  Transmission Date: 20200409
  Serious: No
  Sender: FDA-Public Use
  Company Number: US-PFIZER INC-2020129987

PATIENT
  Age: 63 Year
  Sex: Female

DRUGS (8)
  1. MONTELUKAST SODIUM. [Concomitant]
     Active Substance: MONTELUKAST SODIUM
     Dosage: 10 MG, UNK
  2. AMLODIPINE BESYLATE. [Concomitant]
     Active Substance: AMLODIPINE BESYLATE
     Dosage: 5 MG, UNK
  3. LATANOPROST. [Concomitant]
     Active Substance: LATANOPROST
     Dosage: UNK
  4. SYMBICORT [Concomitant]
     Active Substance: BUDESONIDE\FORMOTEROL FUMARATE DIHYDRATE
     Dosage: UNK (160-4.5MCG HFA AER AD)
  5. CELEBREX [Concomitant]
     Active Substance: CELECOXIB
     Dosage: 100 MG, UNK
  6. XELJANZ XR [Suspect]
     Active Substance: TOFACITINIB CITRATE
     Indication: RHEUMATOID ARTHRITIS
     Dosage: 11 MG, DAILY
     Route: 048
  7. CHROMAGEN [Concomitant]
     Active Substance: ASCORBIC ACID\CYANOCOBALAMIN\FERROUS ASPARTO GLYCINATE\FERROUS FUMARATE\FOLIC ACID\INTRINSIC FACTOR\LEVOMEFOLIC ACID\ZINC
     Dosage: UNK (75-60-1 MG CAPSULE)
  8. PREDNISONE. [Concomitant]
     Active Substance: PREDNISONE
     Dosage: 10 MG, UNK (DS PK)

REACTIONS (2)
  - Condition aggravated [Unknown]
  - Cough [Unknown]

NARRATIVE: CASE EVENT DATE: 202003
